FAERS Safety Report 25750556 (Version 1)
Quarter: 2025Q3

REPORT INFORMATION
  Report Type: Spontaneous
  Country: US (occurrence: None)
  Receive Date: 20250829
  Receipt Date: 20250829
  Transmission Date: 20251021
  Serious: No
  Sender: FDA-CTU
  Company Number: None

PATIENT

DRUGS (1)
  1. TRAVOPROST [Suspect]
     Active Substance: TRAVOPROST

REACTIONS (5)
  - Eye irritation [None]
  - Ocular hyperaemia [None]
  - Eye pruritus [None]
  - Lacrimation increased [None]
  - Swelling of eyelid [None]

NARRATIVE: CASE EVENT DATE: 20250829
